FAERS Safety Report 10066562 (Version 1)
Quarter: 2014Q2

REPORT INFORMATION
  Report Type: Spontaneous
  Country: DE (occurrence: DE)
  Receive Date: 20140408
  Receipt Date: 20140408
  Transmission Date: 20141212
  Serious: Yes (Disabling)
  Sender: FDA-Public Use
  Company Number: GXKR2014DE001501

PATIENT
  Sex: Female
  Weight: 93 kg

DRUGS (6)
  1. OMEPRAZOLE [Suspect]
     Dosage: 20 MG, QD
     Route: 048
     Dates: start: 201104, end: 20131014
  2. PROTHYRID [Concomitant]
  3. SOTALOL [Concomitant]
     Dosage: 0.5 - 0 - 0.5
  4. COUMADINE [Concomitant]
     Dosage: AS NEEDED (ACCORDING TO QUICK^S VALUE)
  5. TILIDIN [Concomitant]
     Dosage: DAILY DOSE: 1 DF DOSAGE FORM EVERY DAY
  6. TEBONIN [Concomitant]

REACTIONS (1)
  - Breast enlargement [Not Recovered/Not Resolved]
